FAERS Safety Report 15769980 (Version 1)
Quarter: 2018Q4

REPORT INFORMATION
  Report Type: Spontaneous
  Country: DE (occurrence: DE)
  Receive Date: 20181228
  Receipt Date: 20181228
  Transmission Date: 20190205
  Serious: Yes (Other)
  Sender: FDA-Public Use
  Company Number: DE-SUN PHARMACEUTICAL INDUSTRIES LTD-2018RR-194197

PATIENT
  Age: 29 Year
  Sex: Female

DRUGS (2)
  1. RSPERIDON [Concomitant]
     Indication: DEREALISATION
     Dosage: 0.5 MILLIGRAM
     Route: 048
     Dates: start: 201705
  2. VENLAFAXINE [Suspect]
     Active Substance: VENLAFAXINE HYDROCHLORIDE
     Indication: DEPRESSION
     Dosage: 150 MILLIGRAM
     Route: 048
     Dates: start: 201705

REACTIONS (2)
  - Pain in extremity [Recovering/Resolving]
  - Pathological fracture [Recovering/Resolving]

NARRATIVE: CASE EVENT DATE: 201801
